FAERS Safety Report 19959332 (Version 1)
Quarter: 2021Q4

REPORT INFORMATION
  Report Type: Spontaneous
  Country: US (occurrence: US)
  Receive Date: 20211014
  Receipt Date: 20211014
  Transmission Date: 20220303
  Serious: Yes (Other)
  Sender: FDA-Public Use
  Company Number: None

PATIENT
  Age: 72 Year
  Sex: Female
  Weight: 49.5 kg

DRUGS (1)
  1. CARBIDOPA\LEVODOPA [Suspect]
     Active Substance: CARBIDOPA\LEVODOPA
     Indication: Parkinson^s disease
     Dosage: ?          QUANTITY:2 TABLET(S);OTHER FREQUENCY:8 TIMES A DAY;
     Route: 048
     Dates: start: 20210826, end: 20211013

REACTIONS (5)
  - Dyspnoea [None]
  - Tremor [None]
  - Electric shock sensation [None]
  - Therapeutic response changed [None]
  - Adverse drug reaction [None]

NARRATIVE: CASE EVENT DATE: 20210826
